FAERS Safety Report 9855707 (Version 2)
Quarter: 2014Q1

REPORT INFORMATION
  Report Type: Report from Study
  Country: US (occurrence: US)
  Receive Date: 20140130
  Receipt Date: 20140219
  Transmission Date: 20141002
  Serious: Yes (Other)
  Sender: FDA-Public Use
  Company Number: PHEH2014US001870

PATIENT
  Age: 32 Year
  Sex: Female
  Weight: 53.2 kg

DRUGS (8)
  1. GILENYA [Suspect]
     Indication: MULTIPLE SCLEROSIS
     Dosage: 0.5 MG, QD
     Route: 048
     Dates: start: 20140122
  2. ZOLOFT [Concomitant]
     Indication: BIPOLAR I DISORDER
  3. NORCO [Concomitant]
     Indication: PAIN
  4. TIZANIDINE [Concomitant]
     Indication: MUSCLE SPASMS
  5. TRAMADOL [Concomitant]
     Indication: NEURALGIA
  6. GABAPENTIN [Concomitant]
     Indication: MUSCLE SPASMS
  7. XANAX [Concomitant]
     Indication: ANXIETY
  8. BACLOFEN [Concomitant]
     Indication: MUSCLE SPASMS

REACTIONS (2)
  - Electrocardiogram ST segment depression [Not Recovered/Not Resolved]
  - Heart rate increased [Unknown]
